FAERS Safety Report 5960249-3 (Version None)
Quarter: 2008Q4

REPORT INFORMATION
  Report Type: 
  Country: None (occurrence: None)
  Receive Date: 20081119
  Receipt Date: 20081119
  Transmission Date: 20090506
  Serious: Yes (Life-Threatening, Hospitalization)
  Sender: FDA-Public Use
  Company Number: None

PATIENT
  Age: 64 Year
  Sex: Female
  Weight: 66 kg

DRUGS (11)
  1. GANCICLOVIR [Suspect]
     Indication: CYTOMEGALOVIRUS INFECTION
     Dosage: 300 MG Q12 HOURS IV
     Route: 042
     Dates: start: 20080325, end: 20080424
  2. VORICONAZOLE [Concomitant]
  3. DAPS [Concomitant]
  4. PREDNISONE TAB [Concomitant]
  5. OCTREOTIDE ACETATE [Concomitant]
  6. LOPERAMIDE HCL [Concomitant]
  7. COMPAZINE [Concomitant]
  8. LANSOPRAZOLE [Concomitant]
  9. CODEINE SUL TAB [Concomitant]
  10. OXYCODONE HCL [Concomitant]
  11. TEMAZEPAM [Concomitant]

REACTIONS (1)
  - WHITE BLOOD CELL COUNT DECREASED [None]
